FAERS Safety Report 9514097 (Version 1)
Quarter: 2013Q3

REPORT INFORMATION
  Report Type: Spontaneous
  Country: DE (occurrence: DE)
  Receive Date: 20130910
  Receipt Date: 20130910
  Transmission Date: 20140515
  Serious: Yes (Other)
  Sender: FDA-Public Use
  Company Number: GXKR2013DE002989

PATIENT
  Sex: 0

DRUGS (3)
  1. VALSARTAN [Suspect]
     Dosage: UKN, DF 160 MG VALSARTAN/12.5 MG HCT
     Route: 048
     Dates: start: 20120308
  2. VALSARTAN [Suspect]
     Dosage: UNK, DF 320 MG VALSARTAN/25 MG HCT
     Dates: start: 20120402, end: 20121116
  3. OLMETEC [Suspect]
     Route: 048
     Dates: start: 20070907, end: 200912

REACTIONS (2)
  - Age-related macular degeneration [Recovered/Resolved]
  - Visual acuity reduced [Recovered/Resolved]
